FAERS Safety Report 8463421-6 (Version None)
Quarter: 2012Q2

REPORT INFORMATION
  Report Type: 
  Country: None (occurrence: None)
  Receive Date: 20120625
  Receipt Date: 20120621
  Transmission Date: 20120825
  Serious: Yes (Death)
  Sender: FDA-Public Use
  Company Number: TR-MERCK-1206USA00762

PATIENT

DRUGS (2)
  1. PRIMAXIN [Suspect]
     Route: 065
  2. MEROPENEM [Suspect]
     Route: 065

REACTIONS (1)
  - DRUG RESISTANCE [None]
